FAERS Safety Report 12847589 (Version 1)
Quarter: 2016Q4

REPORT INFORMATION
  Report Type: Spontaneous
  Country: SE (occurrence: SE)
  Receive Date: 20161014
  Receipt Date: 20161014
  Transmission Date: 20170207
  Serious: Yes (Other)
  Sender: FDA-Public Use
  Company Number: PHHY2016SE138622

PATIENT
  Sex: Female

DRUGS (1)
  1. CEFADROXIL SANDOZ [Suspect]
     Active Substance: CEFADROXIL
     Indication: PNEUMONIA
     Route: 065
     Dates: start: 20160328, end: 20160410

REACTIONS (2)
  - Ageusia [Recovering/Resolving]
  - Anosmia [Recovering/Resolving]
